FAERS Safety Report 5243108-3 (Version None)
Quarter: 2007Q1

REPORT INFORMATION
  Report Type: 
  Country: None (occurrence: None)
  Receive Date: 20070221
  Receipt Date: 20070212
  Transmission Date: 20070707
  Serious: Yes (Hospitalization, Other)
  Sender: FDA-Public Use
  Company Number: US-PFIZER INC-2006091820

PATIENT
  Sex: Male
  Weight: 100.2 kg

DRUGS (10)
  1. ZOLOFT [Suspect]
  2. ARICEPT [Concomitant]
  3. AVANDIA [Concomitant]
  4. ACTOS [Concomitant]
  5. ALL OTHER THERAPEUTIC PRODUCTS [Concomitant]
  6. NAMENDA [Concomitant]
  7. GLIMEPIRIDE [Concomitant]
  8. ATENOLOL [Concomitant]
  9. NEXIUM [Concomitant]
  10. METFORMIN HCL [Concomitant]

REACTIONS (6)
  - AGITATION [None]
  - DELUSION [None]
  - DEMENTIA ALZHEIMER'S TYPE [None]
  - DIABETES MELLITUS [None]
  - FEELING ABNORMAL [None]
  - HALLUCINATION [None]
